FAERS Safety Report 18511334 (Version 1)
Quarter: 2020Q4

REPORT INFORMATION
  Report Type: Spontaneous
  Country: US (occurrence: US)
  Receive Date: 20201117
  Receipt Date: 20201117
  Transmission Date: 20210114
  Serious: No
  Sender: FDA-Public Use
  Company Number: US-RISING PHARMA HOLDINGS, INC.-2020RIS000028

PATIENT
  Sex: Male

DRUGS (1)
  1. LANSOPRAZOLE, AMOXICILLIN, CLARITHROMYCIN [Suspect]
     Active Substance: AMOXICILLIN\CLARITHROMYCIN\LANSOPRAZOLE
     Indication: PRODUCT USED FOR UNKNOWN INDICATION
     Dosage: 14-DAY DOSE
     Route: 048
     Dates: start: 20200605, end: 20200618

REACTIONS (2)
  - Myalgia [Unknown]
  - Renal pain [Unknown]

NARRATIVE: CASE EVENT DATE: 20200623
